FAERS Safety Report 9872776 (Version 2)
Quarter: 2014Q1

REPORT INFORMATION
  Report Type: Spontaneous
  Country: US (occurrence: US)
  Receive Date: 20140206
  Receipt Date: 20140206
  Transmission Date: 20141002
  Serious: No
  Sender: FDA-Public Use
  Company Number: US-ACORDA-ACO_100246_2013

PATIENT
  Sex: Female
  Weight: 54.42 kg

DRUGS (3)
  1. AMPYRA [Suspect]
     Indication: GAIT DISTURBANCE
     Dosage: 10 MG, Q 12 HRS
     Route: 048
     Dates: start: 201008, end: 201009
  2. AMPYRA [Suspect]
     Dosage: 10 MG, Q 12 HRS
     Route: 048
     Dates: start: 2010
  3. TYSABRI [Concomitant]
     Indication: MULTIPLE SCLEROSIS
     Dosage: UNK
     Route: 065
     Dates: start: 2010

REACTIONS (4)
  - Tongue spasm [Recovered/Resolved]
  - Feeling jittery [Recovered/Resolved]
  - Euphoric mood [Recovered/Resolved]
  - Fatigue [Unknown]
